FAERS Safety Report 6555117-2 (Version None)
Quarter: 2010Q1

REPORT INFORMATION
  Report Type: 
  Country: None (occurrence: None)
  Receive Date: 20100126
  Receipt Date: 20100126
  Transmission Date: 20100710
  Serious: No
  Sender: FDA-Public Use
  Company Number: None

PATIENT
  Sex: Female
  Weight: 58.9676 kg

DRUGS (3)
  1. ALPROZOLAM [Suspect]
     Indication: AGRAPHIA
     Dosage: 1 MG 3 TIMES A DAY
     Dates: start: 20030401
  2. ALPROZOLAM [Suspect]
     Indication: ANXIETY
     Dosage: 1 MG 3 TIMES A DAY
     Dates: start: 20030401
  3. ALPROZOLAM [Suspect]
     Indication: PANIC DISORDER
     Dosage: 1 MG 3 TIMES A DAY
     Dates: start: 20030401

REACTIONS (5)
  - DIARRHOEA [None]
  - MALAISE [None]
  - NAUSEA [None]
  - PRODUCT SUBSTITUTION ISSUE [None]
  - SOMNOLENCE [None]
